FAERS Safety Report 16306291 (Version 1)
Quarter: 2019Q2

REPORT INFORMATION
  Report Type: Report from Study
  Country: DO (occurrence: DO)
  Receive Date: 20190513
  Receipt Date: 20190513
  Transmission Date: 20190711
  Serious: Yes (Other)
  Sender: FDA-Public Use
  Company Number: DO-SA-2019SA130231

PATIENT
  Age: 71 Year
  Sex: Male

DRUGS (1)
  1. IRBESARTAN. [Suspect]
     Active Substance: IRBESARTAN
     Indication: BLOOD PRESSURE MEASUREMENT
     Dosage: 300 MG, QD
     Route: 048
     Dates: start: 2011, end: 2018

REACTIONS (2)
  - Eye haemorrhage [Not Recovered/Not Resolved]
  - Lumbar hernia [Not Recovered/Not Resolved]
